FAERS Safety Report 6709879-1 (Version None)
Quarter: 2010Q2

REPORT INFORMATION
  Report Type: 
  Country: None (occurrence: None)
  Receive Date: 20100504
  Receipt Date: 20100429
  Transmission Date: 20101027
  Serious: Yes (Other)
  Sender: FDA-Public Use
  Company Number: AR-BRISTOL-MYERS SQUIBB COMPANY-15048309

PATIENT
  Age: 50 Year
  Sex: Male

DRUGS (2)
  1. SPRYCEL [Suspect]
     Indication: CHRONIC MYELOID LEUKAEMIA
     Dosage: INTERRUPTED FOR 7 DAYS
     Route: 048
  2. PENTASA [Concomitant]

REACTIONS (4)
  - COLITIS [None]
  - CONSTIPATION [None]
  - DIARRHOEA [None]
  - LARGE INTESTINAL ULCER [None]
